FAERS Safety Report 8589936-8 (Version None)
Quarter: 2012Q3

REPORT INFORMATION
  Report Type: 
  Country: None (occurrence: None)
  Receive Date: 20120813
  Receipt Date: 20120807
  Transmission Date: 20120928
  Serious: Yes (Other)
  Sender: FDA-Public Use
  Company Number: CN-ROCHE-1098832

PATIENT

DRUGS (2)
  1. RIBAVIRIN (NON-ROCHE/NON-COMPARATOR) [Suspect]
     Indication: HEPATITIS C
     Dosage: 800-1200MG/D
     Route: 048
  2. PEGASYS [Suspect]
     Indication: HEPATITIS C
     Route: 058

REACTIONS (9)
  - MYALGIA [None]
  - ASTHENIA [None]
  - ANAEMIA [None]
  - PLATELET COUNT DECREASED [None]
  - HYPOTHYROIDISM [None]
  - HEPATITIS C [None]
  - WHITE BLOOD CELL COUNT DECREASED [None]
  - PYREXIA [None]
  - DRUG INEFFECTIVE [None]
